FAERS Safety Report 9103251 (Version 1)
Quarter: 2013Q1

REPORT INFORMATION
  Report Type: Spontaneous
  Country: US (occurrence: US)
  Receive Date: 20130219
  Receipt Date: 20130219
  Transmission Date: 20140127
  Serious: Yes (Other)
  Sender: FDA-Public Use
  Company Number: US-PFIZER INC-2013061518

PATIENT
  Age: 58 Year
  Sex: Male
  Weight: 72.56 kg

DRUGS (3)
  1. LYRICA [Suspect]
     Indication: PAIN IN EXTREMITY
     Dosage: 50 MG, DAILY
     Dates: start: 201203
  2. LYRICA [Suspect]
     Indication: ARTHRALGIA
  3. LIPITOR [Concomitant]
     Indication: BLOOD CHOLESTEROL ABNORMAL
     Dosage: 40 MG, DAILY

REACTIONS (3)
  - Drug ineffective [Not Recovered/Not Resolved]
  - Gait disturbance [Not Recovered/Not Resolved]
  - Burning sensation [Not Recovered/Not Resolved]
